FAERS Safety Report 6530942-2 (Version None)
Quarter: 2010Q1

REPORT INFORMATION
  Report Type: 
  Country: None (occurrence: None)
  Receive Date: 20100108
  Receipt Date: 20091218
  Transmission Date: 20100710
  Serious: No
  Sender: FDA-Public Use
  Company Number: A0793777A

PATIENT
  Age: 47 Year
  Sex: Male

DRUGS (2)
  1. LOVAZA [Suspect]
     Dosage: 2CAP TWICE PER DAY
     Route: 048
     Dates: start: 20070101
  2. METFORMIN HYDROCHLORIDE [Concomitant]

REACTIONS (3)
  - DIZZINESS [None]
  - ERUCTATION [None]
  - THERAPEUTIC RESPONSE UNEXPECTED [None]
